FAERS Safety Report 8174775-2 (Version None)
Quarter: 2012Q1

REPORT INFORMATION
  Report Type: 
  Country: None (occurrence: None)
  Receive Date: 20120229
  Receipt Date: 20120222
  Transmission Date: 20120608
  Serious: Yes (Other)
  Sender: FDA-Public Use
  Company Number: FR-PFIZER INC-2012047605

PATIENT
  Age: 57 Year
  Sex: Female

DRUGS (7)
  1. DAUNORUBICIN HCL [Suspect]
     Indication: ACUTE MYELOID LEUKAEMIA
     Dosage: 75 MG/24H
     Route: 042
     Dates: start: 20090407
  2. NOXAFIL [Suspect]
     Dosage: 800 MG, UNK
     Route: 048
     Dates: start: 20090401
  3. MAGNE-B6 [Suspect]
     Dosage: 2 DF, UNK
     Route: 048
     Dates: start: 20090409
  4. NO SUBJECT DRUG [Suspect]
     Indication: ACUTE MYELOID LEUKAEMIA
  5. CYTARABINE [Suspect]
     Indication: ACUTE MYELOID LEUKAEMIA
     Dosage: 200 MG/24H
     Route: 042
     Dates: start: 20090407
  6. LYRICA [Suspect]
     Dosage: 100 MG, UNK
     Route: 048
     Dates: start: 20090409
  7. OMEPRAZOLE [Suspect]
     Dosage: 20 MG, UNK
     Route: 048
     Dates: start: 20090205

REACTIONS (1)
  - NEUROPATHY PERIPHERAL [None]
